FAERS Safety Report 17079939 (Version 1)
Quarter: 2019Q4

REPORT INFORMATION
  Report Type: Spontaneous
  Country: NL (occurrence: NL)
  Receive Date: 20191127
  Receipt Date: 20191127
  Transmission Date: 20200122
  Serious: Yes (Hospitalization)
  Sender: FDA-Public Use
  Company Number: NL-TEVA-2019-NL-1141908

PATIENT
  Age: 80 Year
  Sex: Female
  Weight: 59 kg

DRUGS (4)
  1. METOPROLOL. [Concomitant]
     Active Substance: METOPROLOL
     Dosage: 1X25 MILLIGRAM
  2. NORTRIPTYLINE TABLET, 10 MG (MILLIGRAM) [Suspect]
     Active Substance: NORTRIPTYLINE
     Indication: NEURALGIA
     Dosage: 1D1T,10 MILLIGRAM
     Route: 065
     Dates: start: 20191018, end: 20191020
  3. COLECALCIFEROL 5600IE [Concomitant]
     Dosage: 1X/WK
  4. ACETYLSALICYLZUUR 1X80 [Concomitant]
     Dosage: 1 X 80

REACTIONS (1)
  - Anaphylactic reaction [Unknown]

NARRATIVE: CASE EVENT DATE: 20191020
